FAERS Safety Report 15228033 (Version 2)
Quarter: 2018Q4

REPORT INFORMATION
  Report Type: Report from Study
  Country: KR (occurrence: KR)
  Receive Date: 20180801
  Receipt Date: 20181206
  Transmission Date: 20190204
  Serious: Yes (Hospitalization)
  Sender: FDA-Public Use
  Company Number: KR-SA-2018SA170518

PATIENT
  Age: 68 Year
  Sex: Female
  Weight: 96 kg

DRUGS (11)
  1. EXFORGE [Concomitant]
     Active Substance: AMLODIPINE BESYLATE\VALSARTAN
     Dosage: UNK
     Dates: start: 20170110
  2. LIPITOR [Concomitant]
     Active Substance: ATORVASTATIN CALCIUM
     Dosage: UNK
     Dates: start: 20141216
  3. PLAVIX [Concomitant]
     Active Substance: CLOPIDOGREL BISULFATE
     Dosage: UNK
     Dates: start: 20100813
  4. AMARYL MEX [Concomitant]
     Dosage: UNK
     Dates: start: 20170111
  5. MECOBALAMIN [Concomitant]
     Active Substance: METHYLCOBALAMIN
     Dosage: UNK
     Dates: start: 20151021
  6. DILATREND [Concomitant]
     Active Substance: CARVEDILOL
     Dosage: UNK
     Dates: start: 20120118
  7. MUCOSTA [Concomitant]
     Active Substance: REBAMIPIDE
     Dosage: UNK
     Dates: start: 20100815
  8. LYRICA [Concomitant]
     Active Substance: PREGABALIN
     Dosage: UNK
     Dates: start: 20150916
  9. LIXISENATIDE [Suspect]
     Active Substance: LIXISENATIDE
     Dosage: 20 UG
     Dates: start: 20170125
  10. CURAN [Concomitant]
     Active Substance: RANITIDINE HYDROCHLORIDE
     Indication: PROPHYLAXIS
     Dosage: UNK
     Dates: start: 20110314
  11. EVOPRIM [Concomitant]
     Dosage: UNK
     Dates: start: 20150916

REACTIONS (1)
  - Pubis fracture [Recovered/Resolved]

NARRATIVE: CASE EVENT DATE: 20170331
